FAERS Safety Report 9050725 (Version 2)
Quarter: 2013Q2

REPORT INFORMATION
  Report Type: Spontaneous
  Country: GB (occurrence: GB)
  Receive Date: 20130205
  Receipt Date: 20130625
  Transmission Date: 20140414
  Serious: Yes (Other)
  Sender: FDA-Public Use
  Company Number: GB-JNJFOC-20130116822

PATIENT
  Age: 74 Year
  Sex: Female
  Weight: 54 kg

DRUGS (4)
  1. REMICADE [Suspect]
     Indication: RHEUMATOID ARTHRITIS
     Dosage: 36-40 INFUSIONS
     Route: 042
     Dates: start: 20060522, end: 20121213
  2. METHOTREXATE [Concomitant]
     Indication: RHEUMATOID ARTHRITIS
     Dosage: ALSO HAD METHOTREXATE PRIOR TO 2004
     Route: 048
     Dates: start: 20070320
  3. BENDROFLUMETHIAZIDE [Concomitant]
     Indication: HYPERTENSION
     Route: 048
  4. FOLIC ACID [Concomitant]
     Dosage: FOR 6 WEEKS,
     Route: 065

REACTIONS (4)
  - Mesothelioma [Not Recovered/Not Resolved]
  - Malignant pleural effusion [Recovering/Resolving]
  - Cardiac disorder [Unknown]
  - Dyspepsia [Recovering/Resolving]
